FAERS Safety Report 15375872 (Version 3)
Quarter: 2019Q3

REPORT INFORMATION
  Report Type: Report from Study
  Country: US (occurrence: US)
  Receive Date: 20180912
  Receipt Date: 20190809
  Transmission Date: 20191004
  Serious: Yes (Hospitalization, Other)
  Sender: FDA-Public Use
  Company Number: US-ARIAD-2016US007282

PATIENT
  Sex: Male

DRUGS (3)
  1. PONATINIB [Suspect]
     Active Substance: PONATINIB
     Indication: CHRONIC MYELOID LEUKAEMIA
     Dosage: 45 MILLIGRAM, QD
     Route: 048
     Dates: start: 201808
  2. PONATINIB [Suspect]
     Active Substance: PONATINIB
     Dosage: 45 MILLIGRAM, QD
     Route: 048
     Dates: start: 20181009
  3. PONATINIB [Suspect]
     Active Substance: PONATINIB
     Indication: MYELOID LEUKAEMIA
     Dosage: 45 MG, QD
     Route: 048
     Dates: start: 20161018

REACTIONS (14)
  - Cerebrovascular accident [Unknown]
  - Dyspnoea [Not Recovered/Not Resolved]
  - Cardiac failure congestive [Recovered/Resolved]
  - Influenza like illness [Unknown]
  - Laboratory test abnormal [Unknown]
  - Bone pain [Unknown]
  - Cytopenia [Unknown]
  - Oedema [Unknown]
  - Off label use [Unknown]
  - Leukopenia [Unknown]
  - Pulmonary oedema [Unknown]
  - Decreased appetite [Unknown]
  - Myalgia [Not Recovered/Not Resolved]
  - Asthenia [Unknown]
